FAERS Safety Report 20587566 (Version 1)
Quarter: 2022Q1

REPORT INFORMATION
  Report Type: Spontaneous
  Country: GB (occurrence: GB)
  Receive Date: 20220314
  Receipt Date: 20220314
  Transmission Date: 20220424
  Serious: Yes (Other)
  Sender: FDA-Public Use
  Company Number: GB-MHRA-MED-202202281602501300-OJSWZ

PATIENT
  Sex: Female

DRUGS (1)
  1. ENOXAPARIN SODIUM [Suspect]
     Active Substance: ENOXAPARIN SODIUM
     Indication: Adverse drug reaction
     Dosage: 40MG/0.4ML

REACTIONS (2)
  - Loss of consciousness [Recovered/Resolved]
  - Medication error [Unknown]
